FAERS Safety Report 19839825 (Version 1)
Quarter: 2021Q3

REPORT INFORMATION
  Report Type: Spontaneous
  Country: US (occurrence: US)
  Receive Date: 20210916
  Receipt Date: 20210916
  Transmission Date: 20211014
  Serious: Yes (Other)
  Sender: FDA-Public Use
  Company Number: US-SUN PHARMACEUTICAL INDUSTRIES LTD-2021R1-311394

PATIENT
  Sex: Female

DRUGS (1)
  1. KETOROLAC [Suspect]
     Active Substance: KETOROLAC TROMETHAMINE
     Indication: PAIN
     Dosage: UNK
     Route: 030

REACTIONS (4)
  - Aspirin-exacerbated respiratory disease [Unknown]
  - Eosinophilic granulomatosis with polyangiitis [Unknown]
  - Acute respiratory failure [Unknown]
  - Drug hypersensitivity [Unknown]
